FAERS Safety Report 12373218 (Version 1)
Quarter: 2016Q2

REPORT INFORMATION
  Report Type: Spontaneous
  Country: US (occurrence: US)
  Receive Date: 20160516
  Receipt Date: 20160516
  Transmission Date: 20160815
  Serious: Yes (Other)
  Sender: FDA-Public Use
  Company Number: US-EPIC PHARMA LLC-2016EPC00001

PATIENT
  Age: 70 Year
  Sex: Female

DRUGS (1)
  1. MECLIZINE HCL [Suspect]
     Active Substance: MECLIZINE HYDROCHLORIDE
     Dosage: 25 MG, UNK
     Route: 048

REACTIONS (3)
  - Pharyngeal oedema [Unknown]
  - Tongue discolouration [Unknown]
  - Swollen tongue [Unknown]
